FAERS Safety Report 13076073 (Version 1)
Quarter: 2016Q4

REPORT INFORMATION
  Report Type: Spontaneous
  Country: US (occurrence: US)
  Receive Date: 20161230
  Receipt Date: 20161230
  Transmission Date: 20170207
  Serious: No
  Sender: FDA-Public Use
  Company Number: None

PATIENT

DRUGS (2)
  1. NYSTATIN POWDER 10000 U/GM [Suspect]
     Active Substance: NYSTATIN
  2. NYSTATIN CRE 100000 [Suspect]
     Active Substance: NYSTATIN

REACTIONS (2)
  - Drug dispensing error [None]
  - Transcription medication error [None]
